FAERS Safety Report 22724614 (Version 2)
Quarter: 2024Q3

REPORT INFORMATION
  Report Type: Spontaneous
  Country: FR (occurrence: FR)
  Receive Date: 20230719
  Receipt Date: 20240712
  Transmission Date: 20241016
  Serious: Yes (Hospitalization)
  Sender: RANBAXY
  Company Number: FR-AFSSAPS-PV2023000364

PATIENT
  Age: 14 Year
  Sex: Male
  Weight: 80 kg

DRUGS (5)
  1. OLANZAPINE [Suspect]
     Active Substance: OLANZAPINE
     Indication: Intentional overdose
     Dosage: UNK
     Route: 048
     Dates: start: 20211213, end: 20211213
  2. FLUOXETINE HYDROCHLORIDE [Suspect]
     Active Substance: FLUOXETINE HYDROCHLORIDE
     Indication: Intentional overdose
     Dosage: UNK
     Route: 048
     Dates: start: 20211213, end: 20211213
  3. TRANXENE [Suspect]
     Active Substance: CLORAZEPATE DIPOTASSIUM
     Indication: Intentional overdose
     Dosage: UNK
     Route: 048
     Dates: start: 20211213, end: 20211213
  4. LEVOMEPROMAZINE [Suspect]
     Active Substance: LEVOMEPROMAZINE
     Indication: Intentional overdose
     Dosage: UNK
     Route: 048
     Dates: start: 20211213, end: 20211213
  5. DEPAKOTE [Suspect]
     Active Substance: DIVALPROEX SODIUM
     Indication: Intentional overdose
     Dosage: UNK
     Route: 048
     Dates: start: 20211213, end: 20211213

REACTIONS (2)
  - Intentional overdose [Recovered/Resolved]
  - Somnolence [Unknown]

NARRATIVE: CASE EVENT DATE: 20211213
